FAERS Safety Report 25093422 (Version 1)
Quarter: 2025Q1

REPORT INFORMATION
  Report Type: Spontaneous
  Country: NL (occurrence: NL)
  Receive Date: 20250319
  Receipt Date: 20250319
  Transmission Date: 20250408
  Serious: Yes (Other)
  Sender: GLAND PHARMA LTD
  Company Number: NL-GLANDPHARMA-NL-2025GLNLIT00724

PATIENT
  Age: 3 Year
  Sex: Male

DRUGS (18)
  1. CISPLATIN [Suspect]
     Active Substance: CISPLATIN
     Indication: Neuroblastoma
     Route: 065
  2. CISPLATIN [Suspect]
     Active Substance: CISPLATIN
     Indication: Metastases to bone
  3. DOXORUBICIN HYDROCHLORIDE [Suspect]
     Active Substance: DOXORUBICIN HYDROCHLORIDE
     Indication: Metastases to bone
     Route: 065
  4. DOXORUBICIN HYDROCHLORIDE [Suspect]
     Active Substance: DOXORUBICIN HYDROCHLORIDE
     Indication: Neuroblastoma
  5. MELPHALAN HYDROCHLORIDE [Suspect]
     Active Substance: MELPHALAN HYDROCHLORIDE
     Indication: Neuroblastoma
     Route: 065
  6. MELPHALAN HYDROCHLORIDE [Suspect]
     Active Substance: MELPHALAN HYDROCHLORIDE
     Indication: Metastases to bone
  7. VINCRISTINE [Suspect]
     Active Substance: VINCRISTINE
     Indication: Neuroblastoma
     Route: 065
  8. VINCRISTINE [Suspect]
     Active Substance: VINCRISTINE
     Indication: Metastases to bone
  9. IFOSFAMIDE [Suspect]
     Active Substance: IFOSFAMIDE
     Indication: Neuroblastoma
     Route: 065
  10. IFOSFAMIDE [Suspect]
     Active Substance: IFOSFAMIDE
     Indication: Metastases to bone
  11. ETOPOSIDE [Suspect]
     Active Substance: ETOPOSIDE
     Indication: Metastases to bone
     Route: 065
  12. ETOPOSIDE [Suspect]
     Active Substance: ETOPOSIDE
     Indication: Neuroblastoma
  13. VINDESINE [Suspect]
     Active Substance: VINDESINE
     Indication: Neuroblastoma
     Route: 065
  14. VINDESINE [Suspect]
     Active Substance: VINDESINE
     Indication: Metastases to bone
  15. DACARBAZINE [Suspect]
     Active Substance: DACARBAZINE
     Indication: Neuroblastoma
     Route: 065
  16. DACARBAZINE [Suspect]
     Active Substance: DACARBAZINE
     Indication: Metastases to bone
  17. BUSULFAN [Suspect]
     Active Substance: BUSULFAN
     Indication: Neuroblastoma
     Route: 065
  18. BUSULFAN [Suspect]
     Active Substance: BUSULFAN
     Indication: Metastases to bone

REACTIONS (6)
  - Acute kidney injury [Not Recovered/Not Resolved]
  - Chronic kidney disease [Not Recovered/Not Resolved]
  - Tubulointerstitial nephritis [Not Recovered/Not Resolved]
  - Hypokalaemia [Not Recovered/Not Resolved]
  - Proteinuria [Not Recovered/Not Resolved]
  - Product use in unapproved indication [Unknown]
